FAERS Safety Report 13097038 (Version 1)
Quarter: 2017Q1

REPORT INFORMATION
  Report Type: Spontaneous
  Country: US (occurrence: US)
  Receive Date: 20170109
  Receipt Date: 20170109
  Transmission Date: 20170428
  Serious: No
  Sender: FDA-Public Use
  Company Number: US-PFIZER INC-2017005722

PATIENT
  Age: 54 Year
  Sex: Female

DRUGS (2)
  1. XANAX [Suspect]
     Active Substance: ALPRAZOLAM
     Dosage: 1 MG, 2X/DAY
     Route: 048
  2. PREMARIN [Concomitant]
     Active Substance: ESTROGENS, CONJUGATED
     Indication: HORMONE REPLACEMENT THERAPY
     Dosage: 0.625 MG, 1X/DAY
     Route: 048
     Dates: start: 2014

REACTIONS (3)
  - Anxiety [Unknown]
  - Drug ineffective [Not Recovered/Not Resolved]
  - Suspected counterfeit product [Not Recovered/Not Resolved]

NARRATIVE: CASE EVENT DATE: 20161224
